FAERS Safety Report 5870342-1 (Version None)
Quarter: 2008Q3

REPORT INFORMATION
  Report Type: 
  Country: None (occurrence: None)
  Receive Date: 20080904
  Receipt Date: 20070925
  Transmission Date: 20090109
  Serious: No
  Sender: FDA-Public Use
  Company Number: US-BRISTOL-MYERS SQUIBB COMPANY-13918958

PATIENT
  Age: 36 Year
  Sex: Female
  Weight: 118 kg

DRUGS (1)
  1. DEFINITY [Suspect]
     Indication: ECHOCARDIOGRAM
     Dosage: TOTAL DOSE OF 5CC WAS ADMINISTERED AS IV PUSH IN 4 INJECTIONS.
     Route: 040

REACTIONS (2)
  - BACK PAIN [None]
  - HEADACHE [None]
